FAERS Safety Report 9036420 (Version 1)
Quarter: 2013Q1

REPORT INFORMATION
  Report Type: Report from Study
  Country: US (occurrence: US)
  Receive Date: 20130129
  Receipt Date: 20130129
  Transmission Date: 20140127
  Serious: No
  Sender: FDA-Public Use
  Company Number: US-ABBOTT-11P-163-0887817-00

PATIENT
  Age: 24 Year
  Sex: Male

DRUGS (3)
  1. HUMIRA 40 MG/0.8 ML PEN [Suspect]
     Indication: CROHN^S DISEASE
     Route: 058
     Dates: start: 201112
  2. VYVANSE [Concomitant]
     Indication: ATTENTION DEFICIT/HYPERACTIVITY DISORDER
     Dosage: NOT REPORTED
     Dates: start: 20111229
  3. ZYRTEC [Concomitant]
     Indication: HYPERSENSITIVITY
     Dosage: NOT REPORTED

REACTIONS (2)
  - Nasopharyngitis [Not Recovered/Not Resolved]
  - Disturbance in attention [Unknown]
